FAERS Safety Report 23951612 (Version 2)
Quarter: 2024Q2

REPORT INFORMATION
  Report Type: Report from Study
  Country: US (occurrence: None)
  Receive Date: 20240607
  Receipt Date: 20240614
  Transmission Date: 20240716
  Serious: Yes (Other)
  Sender: FDA-Public Use
  Company Number: 2024A101705

PATIENT
  Sex: Female
  Weight: 61.7 kg

DRUGS (25)
  1. CALQUENCE [Suspect]
     Active Substance: ACALABRUTINIB
     Indication: Chronic lymphocytic leukaemia
     Route: 048
     Dates: start: 20230830
  2. ALBUTEROL SULFATE [Concomitant]
     Active Substance: ALBUTEROL SULFATE
  3. VITAMIN D3 [Concomitant]
     Active Substance: CHOLECALCIFEROL
  4. VITAMIN C [Concomitant]
     Active Substance: ASCORBIC ACID
  5. VITAMIN B12 [Concomitant]
     Active Substance: CYANOCOBALAMIN
  6. TYLENOL [Concomitant]
     Active Substance: ACETAMINOPHEN
  7. HERBALS\TURMERIC [Concomitant]
     Active Substance: HERBALS\TURMERIC
  8. TURKEY TAIL [Concomitant]
  9. TRAZODONE [Concomitant]
     Active Substance: TRAZODONE HYDROCHLORIDE
  10. TESSALON [Concomitant]
     Active Substance: BENZONATATE
  11. SUPER OMEGA [Concomitant]
  12. EPA/DHA [Concomitant]
  13. SERTRALINE [Concomitant]
     Active Substance: SERTRALINE HYDROCHLORIDE
  14. SENNA [Concomitant]
     Active Substance: SENNA LEAF\SENNOSIDES\SENNOSIDES A AND B
  15. OXYBUTYNIN [Concomitant]
     Active Substance: OXYBUTYNIN\OXYBUTYNIN CHLORIDE
  16. OMEPRAZOLE [Concomitant]
     Active Substance: DONEPEZIL HYDROCHLORIDE\OMEPRAZOLE\OMEPRAZOLE MAGNESIUM
  17. VITAMINS [Concomitant]
     Active Substance: VITAMINS
  18. MONTELUKAST [Concomitant]
     Active Substance: MONTELUKAST SODIUM
  19. MAGNESIUM [Concomitant]
     Active Substance: MAGNESIUM
  20. METAMUCIL [Concomitant]
     Active Substance: PLANTAGO SEED
  21. TEA [Concomitant]
     Active Substance: TEA LEAF
  22. LOSARTAN POTASSIUM [Concomitant]
     Active Substance: LOSARTAN POTASSIUM
  23. FLONASE [Concomitant]
     Active Substance: FLUTICASONE PROPIONATE
  24. REISHI [Concomitant]
     Active Substance: REISHI
  25. TRIAMCINOLONE ACETONIDE [Concomitant]
     Active Substance: TRIAMCINOLONE ACETONIDE

REACTIONS (8)
  - Fall [Unknown]
  - Jaw fracture [Unknown]
  - Joint injury [Unknown]
  - Limb injury [Unknown]
  - Eye injury [Unknown]
  - Pain [Recovering/Resolving]
  - Rash [Not Recovered/Not Resolved]
  - Contusion [Unknown]
